FAERS Safety Report 10005203 (Version 1)
Quarter: 2014Q1

REPORT INFORMATION
  Report Type: Spontaneous
  Country: US (occurrence: US)
  Receive Date: 20140312
  Receipt Date: 20140312
  Transmission Date: 20141002
  Serious: No
  Sender: FDA-Public Use
  Company Number: US-INCYTE CORPORATION-2013IN002768

PATIENT
  Sex: Male
  Weight: 85.26 kg

DRUGS (1)
  1. JAKAFI [Suspect]
     Indication: MYELOFIBROSIS
     Dosage: 10 MG, BID
     Route: 048
     Dates: start: 20120716

REACTIONS (6)
  - Splenomegaly [Unknown]
  - Abdominal pain [Unknown]
  - Abdominal distension [Unknown]
  - Aphagia [Unknown]
  - Weight decreased [Unknown]
  - Blood count abnormal [Unknown]
